FAERS Safety Report 24073110 (Version 1)
Quarter: 2024Q3

REPORT INFORMATION
  Report Type: Spontaneous
  Country: CN (occurrence: CN)
  Receive Date: 20240710
  Receipt Date: 20240710
  Transmission Date: 20241017
  Serious: Yes (Life-Threatening)
  Sender: PFIZER
  Company Number: CN-PFIZER INC-PV202400089420

PATIENT
  Age: 52 Year
  Sex: Male

DRUGS (4)
  1. EPIRUBICIN [Suspect]
     Active Substance: EPIRUBICIN
     Indication: Sarcoma
     Dosage: 150 MG, 1X/DAY
     Route: 041
     Dates: start: 20240623, end: 20240623
  2. EPIRUBICIN [Suspect]
     Active Substance: EPIRUBICIN
     Indication: Soft tissue sarcoma
  3. CYCLOPHOSPHAMIDE [Suspect]
     Active Substance: CYCLOPHOSPHAMIDE
     Indication: Sarcoma
     Dosage: 1.2 G, 1X/DAY
     Route: 041
     Dates: start: 20240622, end: 20240622
  4. VINCRISTINE SULFATE [Suspect]
     Active Substance: VINCRISTINE SULFATE
     Indication: Sarcoma
     Dosage: 2 MG, 1X/DAY
     Route: 041
     Dates: start: 20240622, end: 20240622

REACTIONS (1)
  - Myelosuppression [Unknown]

NARRATIVE: CASE EVENT DATE: 20240625
